FAERS Safety Report 7771386-5 (Version None)
Quarter: 2011Q3

REPORT INFORMATION
  Report Type: 
  Country: None (occurrence: None)
  Receive Date: 20110920
  Receipt Date: 20110916
  Transmission Date: 20111222
  Serious: Yes (Hospitalization)
  Sender: FDA-Public Use
  Company Number: SP04431

PATIENT
  Age: 58 Year
  Sex: Female

DRUGS (14)
  1. BETAXOLOL [Concomitant]
  2. IRON [Concomitant]
  3. URAPIDIL [Concomitant]
  4. METCLOPRAMIDE [Concomitant]
  5. XIFAXAN [Suspect]
     Indication: COLITIS ULCERATIVE
     Dosage: 800 MG (800 MG,1 IN 1 D),ORAL
     Route: 048
     Dates: start: 20110530, end: 20110610
  6. OMEPRAZOLE [Concomitant]
  7. PROPAFENONE HCL [Concomitant]
  8. FUROSEMIDE [Concomitant]
  9. MESALAMINE [Concomitant]
  10. TIETHYLPERAZINE MALEATE [Concomitant]
  11. CEFUROXIME [Concomitant]
  12. AMLODIPINE [Concomitant]
  13. LEVOTHYROXINE [Concomitant]
  14. NITRAZEPAM [Concomitant]

REACTIONS (4)
  - HAEMATURIA [None]
  - DEHYDRATION [None]
  - RENAL FAILURE ACUTE [None]
  - VOMITING [None]
